FAERS Safety Report 9546591 (Version 2)
Quarter: 2013Q3

REPORT INFORMATION
  Report Type: Spontaneous
  Country: SE (occurrence: SE)
  Receive Date: 20130924
  Receipt Date: 20130924
  Transmission Date: 20140515
  Serious: Yes (Life-Threatening)
  Sender: FDA-Public Use
  Company Number: SE-ROCHE-1265480

PATIENT
  Age: 56 Year
  Sex: Female

DRUGS (3)
  1. AVASTIN [Suspect]
     Indication: OFF LABEL USE
     Dosage: 25 MG/ML.
     Route: 031
     Dates: start: 20130605, end: 20130808
  2. AVASTIN [Suspect]
     Indication: PRODUCT USED FOR UNKNOWN INDICATION
     Dosage: 25 MG/ML.
     Route: 031
     Dates: start: 20130708, end: 20130808
  3. METFORMIN [Concomitant]

REACTIONS (1)
  - Abscess [Not Recovered/Not Resolved]
